FAERS Safety Report 6571866-4 (Version None)
Quarter: 2010Q1

REPORT INFORMATION
  Report Type: 
  Country: None (occurrence: None)
  Receive Date: 20100205
  Receipt Date: 20100122
  Transmission Date: 20100710
  Serious: Yes (Death)
  Sender: FDA-Public Use
  Company Number: US-BAYER-201013743GPV

PATIENT

DRUGS (4)
  1. FLUDARABINE [Suspect]
     Indication: HAEMATOLOGICAL MALIGNANCY
     Dosage: ON DAY MINUS 7 TO MINUS 2
     Route: 042
  2. BUSULFAN [Suspect]
     Indication: HAEMATOLOGICAL MALIGNANCY
     Dosage: EVERY 6 HOURS ON DAYS MINUS 4 AND MINUS 3
     Route: 048
  3. TACROLIMUS [Suspect]
     Indication: HAEMATOLOGICAL MALIGNANCY
     Dosage: UNIT DOSE: 0.06 MG/KG
     Route: 048
  4. ANTI-THYMOCYTE GLOBULIN NOS [Suspect]
     Indication: HAEMATOLOGICAL MALIGNANCY
     Dosage: OVER 4 HOURS ON DAYS MINUS 6 TO MINUS 3
     Route: 042

REACTIONS (1)
  - HAEMORRHAGE INTRACRANIAL [None]
